FAERS Safety Report 7589725-7 (Version None)
Quarter: 2011Q3

REPORT INFORMATION
  Report Type: 
  Country: None (occurrence: None)
  Receive Date: 20110705
  Receipt Date: 20110624
  Transmission Date: 20111222
  Serious: Yes (Hospitalization, Other)
  Sender: FDA-Public Use
  Company Number: US-ELI_LILLY_AND_COMPANY-US201106000673

PATIENT
  Sex: Female

DRUGS (14)
  1. BYETTA [Suspect]
     Dosage: 10 UG, BID
     Route: 058
  2. LANTUS [Concomitant]
     Indication: DIABETES MELLITUS
     Dosage: 18 U, EACH EVENING
  3. METOPROLOL TARTRATE [Concomitant]
     Indication: BLOOD PRESSURE
     Dosage: 150 MG, QD
  4. NOVOLOG [Concomitant]
     Indication: DIABETES MELLITUS
     Dosage: 6 U, OTHER
  5. AMLODIPINE [Concomitant]
  6. TRICOR [Concomitant]
  7. BYETTA [Suspect]
     Indication: TYPE 2 DIABETES MELLITUS
     Dosage: 5 UG, BID
     Route: 058
  8. ACE INHIBITORS [Concomitant]
     Indication: BLOOD PRESSURE
  9. PRANDIN [Concomitant]
     Indication: DIABETES MELLITUS
     Dosage: UNK
  10. NEXIUM [Concomitant]
  11. METFORMIN HCL [Concomitant]
     Indication: DIABETES MELLITUS
  12. NORVASC [Concomitant]
     Dosage: UNK
  13. ACTIVELLA [Concomitant]
  14. OSCAL D [Concomitant]

REACTIONS (3)
  - HOSPITALISATION [None]
  - OFF LABEL USE [None]
  - RENAL FAILURE CHRONIC [None]
